FAERS Safety Report 14838555 (Version 14)
Quarter: 2019Q1

REPORT INFORMATION
  Report Type: Report from Study
  Country: ES (occurrence: ES)
  Receive Date: 20180502
  Receipt Date: 20190117
  Transmission Date: 20190417
  Serious: Yes (Other)
  Sender: FDA-Public Use
  Company Number: ES-PFIZER INC-2017510326

PATIENT
  Age: 80 Year
  Sex: Female

DRUGS (12)
  1. ATORVASTATIN CALCIUM. [Suspect]
     Active Substance: ATORVASTATIN CALCIUM
     Dosage: 1 DF,1X/DAY (AT DINNER) HS
     Route: 065
  2. METAMIZOL /06276702/ [Suspect]
     Active Substance: METAMIZOLE
     Indication: PAIN
     Dosage: 1 DF, AS NEEDED (PRN, 8 HOURLY)
     Route: 065
  3. LINAGLIPTIN [Suspect]
     Active Substance: LINAGLIPTIN
     Dosage: 1 DF, 1X/DAY
     Route: 065
  4. NITROGLYCERIN. [Suspect]
     Active Substance: NITROGLYCERIN
     Dosage: 1 DF, 1X/DAY (APPLYING THE PATCH IN THE MORNING AND REMOVING IT AT NIGHT)
     Route: 062
  5. OMEPRAZOLE. [Suspect]
     Active Substance: OMEPRAZOLE
     Dosage: 1 DF, 1X/DAY
     Route: 048
  6. OLMESARTAN MEDOXOMIL. [Suspect]
     Active Substance: OLMESARTAN MEDOXOMIL
     Dosage: 1 DF, 1X/DAY
     Route: 065
  7. PARACETAMOL [Suspect]
     Active Substance: ACETAMINOPHEN
     Indication: PAIN
     Dosage: 1 DF, AS NEEDED (EVERY 8 HOURS)
     Route: 065
  8. PARACETAMOL [Suspect]
     Active Substance: ACETAMINOPHEN
     Indication: PYREXIA
  9. ADIRO [Suspect]
     Active Substance: ASPIRIN
     Dosage: 1 DF, 1X/DAY
     Route: 065
  10. BISOPROLOL APOTEX [Suspect]
     Active Substance: BISOPROLOL FUMARATE
     Dosage: 1 DF, 1X/DAY
     Route: 065
  11. REPAGLINIDE. [Suspect]
     Active Substance: REPAGLINIDE
     Dosage: 1 DF, 3X/DAY (Q8H)
     Route: 065
  12. ALLOPURINOL. [Suspect]
     Active Substance: ALLOPURINOL
     Dosage: 1 DF, 1X/DAY
     Route: 065

REACTIONS (7)
  - Treatment noncompliance [Recovered/Resolved]
  - Hypertension [Unknown]
  - Drug ineffective [Recovered/Resolved]
  - Blood glucose increased [Unknown]
  - Underdose [Unknown]
  - Decreased appetite [Unknown]
  - Somnolence [Unknown]
